FAERS Safety Report 10688221 (Version 1)
Quarter: 2015Q1

REPORT INFORMATION
  Report Type: Spontaneous
  Country: GB (occurrence: GB)
  Receive Date: 20150102
  Receipt Date: 20150102
  Transmission Date: 20150720
  Serious: Yes (Other)
  Sender: FDA-Public Use
  Company Number: GB-WATSON-2014-27917

PATIENT
  Age: 82 Year
  Sex: Female

DRUGS (3)
  1. METOCLOPRAMIDE (UNKNOWN) [Suspect]
     Active Substance: METOCLOPRAMIDE
     Indication: PRODUCT USED FOR UNKNOWN INDICATION
     Dosage: 30 MG, UNKNOWN
     Route: 065
     Dates: start: 20141120
  2. DIAMORPHINE [Suspect]
     Active Substance: DIACETYLMORPHINE
     Indication: PRODUCT USED FOR UNKNOWN INDICATION
     Dosage: 2.5 MG, PRN
     Route: 065
  3. DIAMORPHINE [Suspect]
     Active Substance: DIACETYLMORPHINE
     Dosage: 10 MG, UNKNOWN
     Route: 065
     Dates: start: 20141120

REACTIONS (2)
  - Drug prescribing error [Unknown]
  - Pain [Not Recovered/Not Resolved]
